FAERS Safety Report 24592010 (Version 1)
Quarter: 2024Q4

REPORT INFORMATION
  Report Type: Spontaneous
  Country: US (occurrence: US)
  Receive Date: 20241108
  Receipt Date: 20241108
  Transmission Date: 20250115
  Serious: No
  Sender: DR REDDYS
  Company Number: US-DRL-USA-SPO/USA/24/0016040

PATIENT
  Sex: Male

DRUGS (1)
  1. BUPRENORPHINE\NALOXONE [Suspect]
     Active Substance: BUPRENORPHINE\NALOXONE
     Indication: Product used for unknown indication
     Dosage: SUBLINGUAL FILM, CIII - SINGLE POUCH
     Route: 060

REACTIONS (6)
  - Cold sweat [Unknown]
  - Diarrhoea [Unknown]
  - Restless legs syndrome [Unknown]
  - Pyrexia [Unknown]
  - Withdrawal syndrome [Unknown]
  - Product quality issue [Unknown]
